FAERS Safety Report 24332149 (Version 1)
Quarter: 2024Q3

REPORT INFORMATION
  Report Type: Spontaneous
  Country: US (occurrence: US)
  Receive Date: 20240918
  Receipt Date: 20240918
  Transmission Date: 20241017
  Serious: Yes (Hospitalization, Other)
  Sender: BRISTOL MYERS SQUIBB
  Company Number: US-BRISTOL-MYERS SQUIBB COMPANY-2024-147849

PATIENT
  Age: 31 Year
  Sex: Female

DRUGS (2)
  1. NIVOLUMAB [Suspect]
     Active Substance: NIVOLUMAB
     Indication: Malignant melanoma of sites other than skin
  2. IPILIMUMAB [Suspect]
     Active Substance: IPILIMUMAB
     Indication: Malignant melanoma of sites other than skin

REACTIONS (4)
  - Immune thrombocytopenia [Recovered/Resolved]
  - Hypertransaminasaemia [Recovered/Resolved]
  - Immune-mediated uveitis [Recovering/Resolving]
  - Immune-mediated enterocolitis [Unknown]
